FAERS Safety Report 12376971 (Version 1)
Quarter: 2016Q2

REPORT INFORMATION
  Report Type: Spontaneous
  Country: US (occurrence: US)
  Receive Date: 20160517
  Receipt Date: 20160517
  Transmission Date: 20160815
  Serious: No
  Sender: FDA-Public Use
  Company Number: US-MALLINCKRODT-T201504002

PATIENT
  Sex: Female
  Weight: 53 kg

DRUGS (4)
  1. H.P. ACTHAR [Suspect]
     Active Substance: CORTICOTROPIN
     Indication: MULTIPLE SCLEROSIS RELAPSE
     Dosage: 1 ML; ONCE DAILY FOR 5 DAYS
     Route: 058
     Dates: start: 201506, end: 2015
  2. H.P. ACTHAR [Suspect]
     Active Substance: CORTICOTROPIN
     Dosage: 1 ML; ONCE DAILY FOR 5 DAYS
     Route: 065
     Dates: start: 2015, end: 2015
  3. AVONEX [Concomitant]
     Active Substance: INTERFERON BETA-1A
  4. H.P. ACTHAR [Suspect]
     Active Substance: CORTICOTROPIN
     Dosage: 1 ML; ONCE DAILY FOR 5 DAYS
     Route: 065
     Dates: start: 2015

REACTIONS (4)
  - Amnesia [Not Recovered/Not Resolved]
  - Drug ineffective [Not Recovered/Not Resolved]
  - Incorrect dose administered [Not Recovered/Not Resolved]
  - Incorrect route of drug administration [Not Recovered/Not Resolved]

NARRATIVE: CASE EVENT DATE: 2015
